FAERS Safety Report 7680172-6 (Version None)
Quarter: 2011Q3

REPORT INFORMATION
  Report Type: 
  Country: None (occurrence: None)
  Receive Date: 20110812
  Receipt Date: 20110803
  Transmission Date: 20111222
  Serious: Yes (Hospitalization, Other)
  Sender: FDA-Public Use
  Company Number: US-BAYER-2010-001804

PATIENT
  Age: 24 Year
  Sex: Female
  Weight: 63.492 kg

DRUGS (22)
  1. FENTANYL [Concomitant]
     Dosage: UNK
     Route: 042
     Dates: start: 20050906
  2. MARCAINE [Concomitant]
     Dosage: 0.5 %, UNK
     Dates: start: 20050906
  3. ASPIRIN [Concomitant]
  4. DEMEROL [Concomitant]
     Indication: PROCEDURAL PAIN
     Dosage: 12.5 MG, UNK
     Route: 042
     Dates: start: 20050906, end: 20050907
  5. TYLENOL-500 [Concomitant]
     Indication: PAIN
     Dosage: 650 MG, UNK
     Route: 048
     Dates: start: 20050907, end: 20050908
  6. NEURONTIN [Concomitant]
     Indication: HEADACHE
     Dosage: 300 MG, PRN
  7. DEMEROL [Concomitant]
     Dosage: 25 MG, UNK
     Route: 042
     Dates: start: 20050906, end: 20050907
  8. DILAUDID [Concomitant]
  9. SEVOFLURANE [Concomitant]
     Indication: ANAESTHESIA
     Dosage: UNK
     Route: 055
     Dates: start: 20050906
  10. MORPHINE SULFATE [Concomitant]
     Indication: PROCEDURAL PAIN
     Dosage: 4 MG, UNK
     Route: 042
     Dates: start: 20050906, end: 20050907
  11. YASMIN [Suspect]
     Dosage: UNK
     Dates: start: 20050601, end: 20050901
  12. ROCEPHIN [Concomitant]
     Indication: PREOPERATIVE CARE
     Dosage: 2 G, ONCE
     Route: 042
     Dates: start: 20050906, end: 20050906
  13. PROPOFOL [Concomitant]
     Indication: ANAESTHESIA
     Dosage: UNK
     Route: 042
     Dates: start: 20050906
  14. LIDOCAINE [Concomitant]
     Dosage: 40 MG, UNK
     Route: 042
     Dates: start: 20050906
  15. VERSED [Concomitant]
     Dosage: UNK
     Route: 042
     Dates: start: 20050906
  16. ANZEMET [Concomitant]
     Indication: NAUSEA
     Dosage: 12.5 MG, UNK
     Route: 042
     Dates: start: 20050906, end: 20050907
  17. METOCLOPRAMIDE HYDROCHLORIDE [Concomitant]
     Indication: NAUSEA
     Dosage: 10 MG, UNK
     Route: 042
     Dates: start: 20050906, end: 20050907
  18. CEFTRIAXONE SODIUM [Concomitant]
     Dosage: 1 G, UNK
     Route: 042
     Dates: start: 20050907
  19. PEPCID [Concomitant]
     Dosage: 20 MG, UNK
     Route: 042
     Dates: start: 20050906, end: 20050908
  20. TYLENOL-500 [Concomitant]
     Indication: PYREXIA
  21. DARVOCET [Concomitant]
     Indication: HEADACHE
     Dosage: UNK UNK, PRN
     Route: 048
     Dates: start: 20050908
  22. ATRACURIUM BESYLATE [Concomitant]
     Indication: MUSCLE RELAXANT THERAPY
     Dosage: UNK
     Route: 042
     Dates: start: 20050906

REACTIONS (2)
  - THROMBOSIS [None]
  - INTRACRANIAL VENOUS SINUS THROMBOSIS [None]
